FAERS Safety Report 11855916 (Version 1)
Quarter: 2015Q4

REPORT INFORMATION
  Report Type: Spontaneous
  Country: US (occurrence: US)
  Receive Date: 20151221
  Receipt Date: 20151221
  Transmission Date: 20160305
  Serious: Yes (Hospitalization, Other)
  Sender: FDA-Public Use
  Company Number: US-SMITH AND NEPHEW, INC-2015SMT00618

PATIENT
  Age: 67 Year
  Sex: Male
  Weight: 111.11 kg

DRUGS (3)
  1. REGRANEX [Suspect]
     Active Substance: BECAPLERMIN
     Indication: DIABETIC ULCER
     Dosage: UNK, 1X/DAY
     Route: 061
     Dates: start: 201511, end: 201511
  2. UNSPECIFIED MEDICATIONS FOR HEART DISEASE [Concomitant]
     Indication: CARDIAC DISORDER
     Dosage: UNK
  3. UNSPECIFIED MEDICATIONS FOR HIGH BLOOD PRESSURE [Concomitant]
     Indication: HYPERTENSION
     Dosage: UNK

REACTIONS (4)
  - Infection [Recovering/Resolving]
  - Drug ineffective [Unknown]
  - Wound secretion [Recovering/Resolving]
  - Poor peripheral circulation [Unknown]

NARRATIVE: CASE EVENT DATE: 201511
